FAERS Safety Report 25121114 (Version 4)
Quarter: 2025Q4

REPORT INFORMATION
  Report Type: Report from Study
  Country: JP (occurrence: JP)
  Receive Date: 20250326
  Receipt Date: 20251121
  Transmission Date: 20260117
  Serious: Yes (Hospitalization, Other)
  Sender: ASTELLAS
  Company Number: JP-ASTELLAS-2025-AER-004907

PATIENT
  Age: 54 Year
  Sex: Male
  Weight: 52 kg

DRUGS (25)
  1. VYLOY [Suspect]
     Active Substance: ZOLBETUXIMAB-CLZB
     Indication: Gastric cancer recurrent
     Dosage: 1200MG
     Route: 042
     Dates: start: 20250122, end: 20250122
  2. VYLOY [Suspect]
     Active Substance: ZOLBETUXIMAB-CLZB
     Indication: Metastatic neoplasm
  3. VYLOY [Suspect]
     Active Substance: ZOLBETUXIMAB-CLZB
     Indication: Metastases to lymph nodes
  4. OXALIPLATIN [Suspect]
     Active Substance: OXALIPLATIN
     Indication: Gastric cancer recurrent
     Route: 042
     Dates: start: 20250122, end: 20250122
  5. OXALIPLATIN [Suspect]
     Active Substance: OXALIPLATIN
     Indication: Metastatic neoplasm
  6. OXALIPLATIN [Suspect]
     Active Substance: OXALIPLATIN
     Indication: Metastases to lymph nodes
  7. CAPECITABINE [Suspect]
     Active Substance: CAPECITABINE
     Indication: Gastric cancer recurrent
     Route: 048
     Dates: start: 20250122, end: 20250205
  8. CAPECITABINE [Suspect]
     Active Substance: CAPECITABINE
     Indication: Metastatic neoplasm
  9. CAPECITABINE [Suspect]
     Active Substance: CAPECITABINE
     Indication: Metastases to lymph nodes
  10. RABEPRAZOLE SODIUM [Concomitant]
     Active Substance: RABEPRAZOLE SODIUM
     Indication: Product used for unknown indication
     Dosage: AFTER BREAKFAST
     Route: 065
     Dates: end: 20250122
  11. OLANZAPINE [Concomitant]
     Active Substance: OLANZAPINE
     Indication: Prophylaxis
     Route: 065
     Dates: start: 20250121
  12. ALOXI [Concomitant]
     Active Substance: PALONOSETRON HYDROCHLORIDE
     Indication: Prophylaxis
     Route: 065
     Dates: start: 20250121
  13. FOSNETUPITANT CHLORIDE HYDROCHLORIDE [Concomitant]
     Active Substance: FOSNETUPITANT CHLORIDE HYDROCHLORIDE
     Indication: Prophylaxis
     Route: 065
     Dates: start: 20250121
  14. DECADRON [Concomitant]
     Active Substance: DEXAMETHASONE
     Indication: Prophylaxis
     Route: 065
     Dates: start: 20250121
  15. POLARAMINE [Concomitant]
     Active Substance: DEXCHLORPHENIRAMINE MALEATE
     Indication: Prophylaxis
     Route: 065
     Dates: start: 20250121
  16. PYRIDOXAL [Concomitant]
     Active Substance: PYRIDOXAL
     Indication: Product used for unknown indication
     Dosage: AFTER BREAKFAST AND DINNER
     Route: 065
     Dates: start: 20250122, end: 20250205
  17. Heparinoid [Concomitant]
     Indication: Product used for unknown indication
     Dosage: APPLY ONCE OR SEVERAL TIMES A DAY
     Route: 062
     Dates: start: 20250122
  18. VONOPRAZAN FUMARATE [Concomitant]
     Active Substance: VONOPRAZAN FUMARATE
     Indication: Gastritis
     Dosage: AFTER BREAKFAST
     Route: 048
     Dates: start: 20250206, end: 202502
  19. VONOPRAZAN FUMARATE [Concomitant]
     Active Substance: VONOPRAZAN FUMARATE
     Dosage: AFTER BREAKFAST
     Route: 048
     Dates: start: 20250210
  20. OMEPRAZOLE [Concomitant]
     Active Substance: OMEPRAZOLE
     Indication: Gastritis
     Route: 065
     Dates: start: 20250207, end: 20250209
  21. AMPICILLIN SODIUM\SULBACTAM SODIUM [Concomitant]
     Active Substance: AMPICILLIN SODIUM\SULBACTAM SODIUM
     Indication: Gastritis
     Route: 042
     Dates: start: 20250209, end: 20250214
  22. GLUTAMINE\SODIUM GUALENATE [Concomitant]
     Active Substance: GLUTAMINE\SODIUM GUALENATE
     Indication: Gastritis
     Dosage: AFTER EACH MEAL
     Route: 065
     Dates: start: 20250209
  23. BIO-THREE [Concomitant]
     Active Substance: HERBALS
     Indication: Gastritis
     Dosage: 1 TABLET/DOSE, THREE TIMES DAILY AFTER EACH MEAL
     Route: 065
     Dates: start: 20250209
  24. AUGMENTIN [Concomitant]
     Active Substance: AMOXICILLIN\CLAVULANATE POTASSIUM
     Indication: Gastritis
     Dosage: 250RS TABLET/DOSE, THREE TIMES DAILY AFTER EACH MEAL
     Route: 065
     Dates: start: 20250214
  25. AMOXICILLIN [Concomitant]
     Active Substance: AMOXICILLIN
     Indication: Gastritis
     Dosage: AFTER EACH MEAL
     Route: 065
     Dates: start: 20250214

REACTIONS (3)
  - Renal infarct [Unknown]
  - Gastritis erosive [Recovered/Resolved]
  - Nausea [Recovered/Resolved]

NARRATIVE: CASE EVENT DATE: 20250101
